FAERS Safety Report 6012172-6 (Version None)
Quarter: 2008Q4

REPORT INFORMATION
  Report Type: 
  Country: None (occurrence: None)
  Receive Date: 20081218
  Receipt Date: 20031110
  Transmission Date: 20090506
  Serious: No
  Sender: FDA-Public Use
  Company Number: US-ABBOTT-08P-163-0446416-00

PATIENT
  Age: 7 Year
  Sex: Male
  Weight: 43.584 kg

DRUGS (2)
  1. MERIDIA [Suspect]
     Indication: HYPOTHALAMO-PITUITARY DISORDER
  2. MERIDIA [Suspect]
     Indication: BRAIN NEOPLASM

REACTIONS (1)
  - ABNORMAL WEIGHT GAIN [None]
